FAERS Safety Report 9382214 (Version 3)
Quarter: 2013Q3

REPORT INFORMATION
  Report Type: Report from Study
  Country: CA (occurrence: CA)
  Receive Date: 20130703
  Receipt Date: 20130808
  Transmission Date: 20140515
  Serious: No
  Sender: FDA-Public Use
  Company Number: CA-ABBOTT-13P-028-1112657-00

PATIENT
  Sex: Female
  Weight: 51 kg

DRUGS (1)
  1. HUMIRA [Suspect]
     Indication: CROHN^S DISEASE
     Dosage: 160 MG LOADING DOSE, NOT APPLICABLE
     Route: 058
     Dates: start: 20130619

REACTIONS (2)
  - Blood creatinine increased [Unknown]
  - Rash [Unknown]
